FAERS Safety Report 11263613 (Version 3)
Quarter: 2015Q3

REPORT INFORMATION
  Report Type: Spontaneous
  Country: AU (occurrence: AU)
  Receive Date: 20150713
  Receipt Date: 20150814
  Transmission Date: 20151125
  Serious: Yes (Hospitalization)
  Sender: FDA-Public Use
  Company Number: AU-ROCHE-1606772

PATIENT
  Age: 80 Year
  Sex: Male

DRUGS (16)
  1. CARDIZEM CD [Concomitant]
     Active Substance: DILTIAZEM HYDROCHLORIDE
     Route: 065
  2. PREDNISOLON [Concomitant]
     Active Substance: PREDNISOLONE
     Route: 065
  3. ASPIRIN. [Concomitant]
     Active Substance: ASPIRIN
     Route: 065
  4. LUCENTIS [Suspect]
     Active Substance: RANIBIZUMAB
     Route: 050
     Dates: start: 20150603, end: 20150603
  5. FOSAMAX PLUS D [Concomitant]
     Active Substance: ALENDRONATE SODIUM\CHOLECALCIFEROL
  6. LASIX [Concomitant]
     Active Substance: FUROSEMIDE
     Route: 065
  7. PANAMAX (AUSTRALIA) [Concomitant]
     Route: 065
  8. LUCENTIS [Suspect]
     Active Substance: RANIBIZUMAB
     Indication: AGE-RELATED MACULAR DEGENERATION
     Dosage: IN RIGHT EYE
     Route: 050
     Dates: start: 20150409
  9. LUCENTIS [Suspect]
     Active Substance: RANIBIZUMAB
     Route: 050
  10. NEXIUM [Concomitant]
     Active Substance: ESOMEPRAZOLE MAGNESIUM
     Route: 065
  11. NITROLINGUAL [Concomitant]
     Active Substance: NITROGLYCERIN
     Route: 065
  12. PANADEINE FORTE [Concomitant]
     Active Substance: ACETAMINOPHEN\CODEINE PHOSPHATE
  13. EZETROL [Concomitant]
     Active Substance: EZETIMIBE
     Route: 065
  14. MONOPRIL [Concomitant]
     Active Substance: FOSINOPRIL SODIUM
     Route: 065
  15. RIVAROXABAN [Concomitant]
     Active Substance: RIVAROXABAN
     Route: 065
  16. ROSUVASTATIN CALCIUM. [Concomitant]
     Active Substance: ROSUVASTATIN CALCIUM
     Route: 065

REACTIONS (2)
  - Subretinal fluid [Not Recovered/Not Resolved]
  - Myocardial infarction [Unknown]

NARRATIVE: CASE EVENT DATE: 20150605
